FAERS Safety Report 5622080-8 (Version None)
Quarter: 2008Q1

REPORT INFORMATION
  Report Type: 
  Country: None (occurrence: None)
  Receive Date: 20080211
  Receipt Date: 20080204
  Transmission Date: 20080703
  Serious: Yes (Other)
  Sender: FDA-Public Use
  Company Number: ES-MERCK-0801ESP00027

PATIENT
  Age: 68 Year
  Sex: Male

DRUGS (3)
  1. CANCIDAS [Suspect]
     Indication: CANDIDIASIS
     Route: 042
     Dates: start: 20080101, end: 20080124
  2. [THERAPY UNSPECIFIED] [Concomitant]
     Route: 065
  3. ANTIMICROBIAL (UNSPECIFIED) [Concomitant]
     Route: 065
     Dates: end: 20080101

REACTIONS (3)
  - PLATELET COUNT DECREASED [None]
  - RED BLOOD CELL COUNT DECREASED [None]
  - WHITE BLOOD CELL COUNT DECREASED [None]
